FAERS Safety Report 8599255 (Version 3)
Quarter: 2013Q1

REPORT INFORMATION
  Report Type: Spontaneous
  Country: NL (occurrence: NL)
  Receive Date: 20120605
  Receipt Date: 20130226
  Transmission Date: 20140127
  Serious: No
  Sender: FDA-Public Use
  Company Number: PHHY2012NL047195

PATIENT
  Sex: Female
  Weight: 65 kg

DRUGS (7)
  1. SERTRALINE SANDOZ [Suspect]
     Indication: DEPRESSION
     Dosage: 1 DF DAILY
     Route: 048
     Dates: start: 20110412, end: 201204
  2. DEPAKINE CHRONO [Concomitant]
     Dosage: 1 DF, BID
     Dates: start: 201202
  3. TEMAZEPAM [Concomitant]
     Dosage: 1 DF, QD
     Dates: start: 201202
  4. OXAZEPAM [Concomitant]
     Dosage: 2 DF, QD
     Dates: start: 201202
  5. PIPAMPERONE [Concomitant]
     Dosage: 40 MG, UNK
     Dates: start: 201202
  6. PIPAMPERONE [Concomitant]
     Dosage: 40 MG, UNK
     Dates: start: 20110121
  7. THYRAX [Concomitant]
     Dates: start: 20100301

REACTIONS (1)
  - Breast cancer [Unknown]
